FAERS Safety Report 7995565-7 (Version None)
Quarter: 2011Q4

REPORT INFORMATION
  Report Type: 
  Country: None (occurrence: None)
  Receive Date: 20111220
  Receipt Date: 20111213
  Transmission Date: 20120403
  Serious: Yes (Other)
  Sender: FDA-Public Use
  Company Number: US-ABBOTT-11P-163-0882966-00

PATIENT
  Sex: Female
  Weight: 74.002 kg

DRUGS (8)
  1. TRAZODONE HCL [Concomitant]
     Indication: INSOMNIA
  2. HUMIRA [Suspect]
     Indication: RHEUMATOID ARTHRITIS
     Dates: start: 20110801
  3. CLONAZEPAM [Concomitant]
     Indication: ANXIETY
  4. LISINOPRIL [Concomitant]
     Indication: HYPERTENSION
  5. PRAVASTATIN [Concomitant]
     Indication: BLOOD CHOLESTEROL INCREASED
  6. FLUOXETINE [Concomitant]
     Indication: DEPRESSION
  7. FOLIC ACID [Concomitant]
     Indication: VITAMIN SUPPLEMENTATION
  8. METHOTREXATE [Concomitant]
     Indication: RHEUMATOID ARTHRITIS

REACTIONS (5)
  - ABDOMINAL HERNIA [None]
  - ABDOMINAL WALL DISORDER [None]
  - TOOTH INFECTION [None]
  - ABDOMINAL PAIN [None]
  - ABDOMINAL MASS [None]
